FAERS Safety Report 15319629 (Version 3)
Quarter: 2018Q4

REPORT INFORMATION
  Report Type: Report from Study
  Country: US (occurrence: US)
  Receive Date: 20180827
  Receipt Date: 20181113
  Transmission Date: 20190204
  Serious: Yes (Other)
  Sender: FDA-Public Use
  Company Number: US-BIOGEN-2018BI00624917

PATIENT
  Sex: Female

DRUGS (3)
  1. TYSABRI [Suspect]
     Active Substance: NATALIZUMAB
     Indication: MULTIPLE SCLEROSIS
     Route: 065
     Dates: start: 20170629
  2. VALIUM [Concomitant]
     Active Substance: DIAZEPAM
     Indication: PRODUCT USED FOR UNKNOWN INDICATION
     Route: 065
  3. CBD VAPE AND BALM [Concomitant]
     Indication: PRODUCT USED FOR UNKNOWN INDICATION
     Route: 065

REACTIONS (9)
  - Poor peripheral circulation [Unknown]
  - Gait disturbance [Unknown]
  - Ataxia [Unknown]
  - Tetanus [Unknown]
  - Drug ineffective [Unknown]
  - Wound haemorrhage [Unknown]
  - Hyperkeratosis [Unknown]
  - Impaired healing [Unknown]
  - Coagulation time prolonged [Unknown]
